FAERS Safety Report 16111713 (Version 2)
Quarter: 2019Q1

REPORT INFORMATION
  Report Type: Report from Study
  Country: ZA (occurrence: ZA)
  Receive Date: 20190325
  Receipt Date: 20190326
  Transmission Date: 20190418
  Serious: Yes (Life-Threatening, Other)
  Sender: FDA-Public Use
  Company Number: ZA-SA-2018SA265027

PATIENT
  Age: 68 Year
  Sex: Male

DRUGS (8)
  1. TOUJEO [Suspect]
     Active Substance: INSULIN GLARGINE
     Dosage: 40 U, QD
     Dates: start: 20181022
  2. TOUJEO [Suspect]
     Active Substance: INSULIN GLARGINE
     Indication: TYPE 2 DIABETES MELLITUS
     Dosage: 20 U, QD
     Dates: start: 20180905, end: 20180911
  3. TOUJEO [Suspect]
     Active Substance: INSULIN GLARGINE
     Dosage: 60 U, BT
     Dates: start: 20180822
  4. TOUJEO [Suspect]
     Active Substance: INSULIN GLARGINE
     Dosage: 30 U, QD
     Dates: start: 20180914
  5. TOUJEO [Suspect]
     Active Substance: INSULIN GLARGINE
     Dosage: 36 U, QD
     Dates: start: 20180917
  6. GLUCOPHAGE [Concomitant]
     Active Substance: METFORMIN HYDROCHLORIDE
     Dosage: 1500 MG, QD (AFTER SUPPER)
     Dates: start: 20180822
  7. TOUJEO [Suspect]
     Active Substance: INSULIN GLARGINE
     Dosage: 24 U, QD
     Dates: start: 20180911
  8. NO STUDY DRUG GIVEN [Suspect]
     Active Substance: UNSPECIFIED INGREDIENT

REACTIONS (9)
  - Blood glucose increased [Not Recovered/Not Resolved]
  - Diabetes mellitus inadequate control [Recovered/Resolved]
  - Pain [Recovered/Resolved]
  - Insomnia [Recovered/Resolved]
  - Drug ineffective [Unknown]
  - Weight decreased [Unknown]
  - Blood glucose increased [Not Recovered/Not Resolved]
  - Injury [Recovering/Resolving]
  - Fall [Unknown]

NARRATIVE: CASE EVENT DATE: 20180905
